FAERS Safety Report 11183576 (Version 2)
Quarter: 2015Q2

REPORT INFORMATION
  Report Type: Report from Study
  Country: ZA (occurrence: ZA)
  Receive Date: 20150612
  Receipt Date: 20150619
  Transmission Date: 20150821
  Serious: Yes (Death)
  Sender: FDA-Public Use
  Company Number: ZA-AMGEN-ZAFSL2015056255

PATIENT
  Age: 55 Year
  Sex: Male

DRUGS (2)
  1. ARANESP [Suspect]
     Active Substance: DARBEPOETIN ALFA
     Indication: NEPHROGENIC ANAEMIA
     Dosage: 60 MUG, Q2WK
     Route: 058
     Dates: start: 20131030
  2. VENOFER [Concomitant]
     Active Substance: IRON SUCROSE

REACTIONS (1)
  - Cardiac failure [Fatal]
